FAERS Safety Report 5806333-6 (Version None)
Quarter: 2008Q3

REPORT INFORMATION
  Report Type: 
  Country: None (occurrence: None)
  Receive Date: 20080702
  Receipt Date: 20070512
  Transmission Date: 20090109
  Serious: No
  Sender: FDA-Public Use
  Company Number: 2007-BP-05616BP

PATIENT
  Sex: Male

DRUGS (23)
  1. MIRAPEX [Suspect]
     Indication: PARKINSON'S DISEASE
     Dosage: 1.5 MG (0.25 MG,2 TABS TID)
     Dates: start: 20021201, end: 20050701
  2. SINEMET [Concomitant]
  3. REQUIP [Concomitant]
  4. ARTANE [Concomitant]
  5. ZOCOR [Concomitant]
  6. POTASSIUM (POTASSIUM) [Concomitant]
  7. NIACIN ER (NICOTINIC ACID) [Concomitant]
  8. ASCORBIC ACID [Concomitant]
  9. COQ10 (UBIDECARENONE) [Concomitant]
  10. PRILOSEC [Concomitant]
  11. FLURISOLIDE (ALL OTHER THERAPEUTIC PRODUCTS) (SEE TEXT) [Concomitant]
  12. CALCIUM (CALCIUM) [Concomitant]
  13. IBUPROFEN [Concomitant]
  14. NASALIDE [Concomitant]
  15. NAPROXEN [Concomitant]
  16. SYMMETREL [Concomitant]
  17. TRIHEXYPHENIDYL HCL [Concomitant]
  18. ROPINIROL (ROPINIROLE) [Concomitant]
  19. ASPIRIN [Concomitant]
  20. CITRACAL (CALCIUM CITRATE) [Concomitant]
  21. LIPITOR [Concomitant]
  22. FLONASE [Concomitant]
  23. LEVITRA (VARDENFIL HYDROCHLORIDE) (TA) [Concomitant]

REACTIONS (2)
  - OBSESSIVE-COMPULSIVE DISORDER [None]
  - PATHOLOGICAL GAMBLING [None]
